FAERS Safety Report 7488261-6 (Version None)
Quarter: 2011Q2

REPORT INFORMATION
  Report Type: 
  Country: None (occurrence: None)
  Receive Date: 20110511
  Receipt Date: 20110426
  Transmission Date: 20111010
  Serious: Yes (Other)
  Sender: FDA-Public Use
  Company Number: 032086

PATIENT
  Sex: Male

DRUGS (3)
  1. DEPAKENE [Concomitant]
  2. KEPPRA [Suspect]
     Indication: EPILEPSY
     Dosage: 250 MG QD, ORAL;
     Route: 048
     Dates: start: 20101201, end: 20110101
  3. PHENOBARBITAL TAB [Concomitant]

REACTIONS (3)
  - PSYCHOMOTOR SKILLS IMPAIRED [None]
  - NERVOUSNESS [None]
  - GAMMA-GLUTAMYLTRANSFERASE INCREASED [None]
